FAERS Safety Report 9170442 (Version 2)
Quarter: 2013Q1

REPORT INFORMATION
  Report Type: Report from Study
  Country: US (occurrence: US)
  Receive Date: 20130319
  Receipt Date: 20130325
  Transmission Date: 20140127
  Serious: Yes (Death, Hospitalization, Other)
  Sender: FDA-Public Use
  Company Number: US-ABBOTT-13P-163-1064173-00

PATIENT
  Age: 86 None
  Sex: Male

DRUGS (2)
  1. LEUPROLIDE ACETATE [Suspect]
     Indication: PROSTATE CANCER
     Dates: start: 2004, end: 201301
  2. ZYTIGA [Concomitant]
     Indication: PRODUCT USED FOR UNKNOWN INDICATION

REACTIONS (9)
  - Prostate cancer stage IV [Fatal]
  - Prostatic specific antigen increased [Fatal]
  - Prostate cancer metastatic [Fatal]
  - Prostatic specific antigen increased [Not Recovered/Not Resolved]
  - General physical health deterioration [Not Recovered/Not Resolved]
  - Fall [Unknown]
  - Hip fracture [Unknown]
  - Cystitis [Unknown]
  - Oedema peripheral [Not Recovered/Not Resolved]
